FAERS Safety Report 7450180-9 (Version None)
Quarter: 2011Q2

REPORT INFORMATION
  Report Type: 
  Country: None (occurrence: None)
  Receive Date: 20110502
  Receipt Date: 20110427
  Transmission Date: 20111010
  Serious: No
  Sender: FDA-Public Use
  Company Number: US-PFIZER INC-2011090849

PATIENT
  Sex: Female

DRUGS (2)
  1. GEODON [Suspect]
     Dosage: 60 MG, 2X/DAY
  2. GEODON [Suspect]
     Dosage: 80 MG, 2X/DAY

REACTIONS (1)
  - HEADACHE [None]
